FAERS Safety Report 10102067 (Version 1)
Quarter: 2014Q2

REPORT INFORMATION
  Report Type: Spontaneous
  Country: US (occurrence: None)
  Receive Date: 20140423
  Receipt Date: 20140423
  Transmission Date: 20141212
  Serious: Yes (Other)
  Sender: FDA-Public Use
  Company Number: None

PATIENT
  Age: 72 Year
  Sex: Male

DRUGS (3)
  1. XTANDI 40 MG [Suspect]
     Indication: PROSTATE CANCER
     Route: 048
     Dates: start: 20130801
  2. KEPPRA [Concomitant]
  3. OXYCODONE/APAP [Concomitant]

REACTIONS (2)
  - Prostatic specific antigen increased [None]
  - Stoma site haemorrhage [None]
